FAERS Safety Report 8482417-1 (Version None)
Quarter: 2012Q3

REPORT INFORMATION
  Report Type: 
  Country: None (occurrence: None)
  Receive Date: 20120702
  Receipt Date: 20101209
  Transmission Date: 20120928
  Serious: Yes (Hospitalization)
  Sender: FDA-Public Use
  Company Number: US-GLAXOSMITHKLINE-A0898887A

PATIENT
  Sex: Female

DRUGS (8)
  1. VITAMIN TAB [Concomitant]
  2. PROPAFENONE HYDROCHLORIDE [Suspect]
     Indication: ATRIAL FIBRILLATION
  3. RYTHMOL [Suspect]
     Indication: ARRHYTHMIA
     Dosage: 150MG UNKNOWN
     Route: 065
     Dates: start: 19940101
  4. MAGNESIUM SULFATE [Concomitant]
  5. PLAVIX [Concomitant]
  6. IMDUR [Concomitant]
  7. ASPIRIN [Concomitant]
  8. CARDIZEM [Concomitant]

REACTIONS (8)
  - DRUG INEFFECTIVE [None]
  - PERFORMANCE STATUS DECREASED [None]
  - OVERDOSE [None]
  - DYSPNOEA [None]
  - ATRIAL FIBRILLATION [None]
  - ABASIA [None]
  - PRODUCT QUALITY ISSUE [None]
  - ARRHYTHMIA [None]
